FAERS Safety Report 6069190-1 (Version None)
Quarter: 2009Q1

REPORT INFORMATION
  Report Type: 
  Country: None (occurrence: None)
  Receive Date: 20090206
  Receipt Date: 20090130
  Transmission Date: 20090719
  Serious: Yes (Hospitalization, Other)
  Sender: FDA-Public Use
  Company Number: GR-ROCHE-611874

PATIENT
  Sex: Male
  Weight: 92.5 kg

DRUGS (1)
  1. METHOXY POLYETHYLENE GLYCOL-EPOETIN BETA [Suspect]
     Dosage: FORM: PDS.  TEMPORARILY INTERRUPTED ON 29 JANUARY 2009.
     Route: 042
     Dates: start: 20081008, end: 20081231

REACTIONS (3)
  - PYREXIA [None]
  - THROMBOSIS [None]
  - TREMOR [None]
